FAERS Safety Report 21784000 (Version 2)
Quarter: 2023Q1

REPORT INFORMATION
  Report Type: Report from Study
  Country: CA (occurrence: CA)
  Receive Date: 20221227
  Receipt Date: 20230214
  Transmission Date: 20230418
  Serious: Yes (Hospitalization)
  Sender: FDA-Public Use
  Company Number: CA-MYLANLABS-2022M1146014

PATIENT
  Sex: Male

DRUGS (1)
  1. HULIO [Suspect]
     Active Substance: ADALIMUMAB-FKJP
     Indication: Crohn^s disease
     Dosage: UNK BIWEEKLY
     Route: 058
     Dates: start: 20220716

REACTIONS (5)
  - Mental disorder [Unknown]
  - Confusional state [Unknown]
  - Disturbance in attention [Unknown]
  - Product dose omission issue [Unknown]
  - Lack of injection site rotation [Unknown]
